FAERS Safety Report 9344263 (Version 1)
Quarter: 2013Q2

REPORT INFORMATION
  Report Type: Spontaneous
  Country: US (occurrence: None)
  Receive Date: 20130610
  Receipt Date: 20130610
  Transmission Date: 20140414
  Serious: Yes (Other)
  Sender: FDA-Public Use
  Company Number: 001543408A

PATIENT
  Age: 43 Year
  Sex: Female

DRUGS (7)
  1. PROACTIVE SOLUTION RENEWING CLEANSER [Suspect]
     Indication: ACNE
     Dosage: DERMAL USED
     Dates: start: 20130502, end: 20130515
  2. PROACTIVE [Suspect]
     Indication: ACNE
     Dosage: DERMA USED TWICE
     Dates: start: 20130502, end: 20130515
  3. OIL FREE MOISTURE SPF 15 [Suspect]
     Indication: ACNE
     Dates: start: 20130502, end: 20130515
  4. CYMBALTA [Concomitant]
  5. INDERAL [Concomitant]
  6. FERROUS SULFATE [Concomitant]
  7. BIRTH CONTROL [Concomitant]

REACTIONS (3)
  - Urticaria [None]
  - Swelling [None]
  - Throat tightness [None]
